FAERS Safety Report 6621852-0 (Version None)
Quarter: 2010Q1

REPORT INFORMATION
  Report Type: 
  Country: None (occurrence: None)
  Receive Date: 20100304
  Receipt Date: 20100217
  Transmission Date: 20100710
  Serious: Yes (Other)
  Sender: FDA-Public Use
  Company Number: AUR-APL-2010-00361

PATIENT
  Age: 63 Year
  Sex: Male
  Weight: 68.7 kg

DRUGS (10)
  1. TERBINAFINE [Suspect]
     Indication: ONYCHOMYCOSIS
     Dosage: 250MG, UNK, ORAL
     Route: 048
     Dates: start: 20090624, end: 20091125
  2. AMLODIPINE [Concomitant]
  3. ATORVASTATIN CALCIUM [Concomitant]
  4. BECLOMETASONE NASAL [Concomitant]
  5. BENDROFLUMETHIAZIDE [Concomitant]
  6. DOXAZOSIN [Concomitant]
  7. EXENATIDE [Concomitant]
  8. METFORMIN HYDROCHLORIDE [Concomitant]
  9. REMIPRIL [Concomitant]
  10. SODIUM CROMOGLICATE [Concomitant]

REACTIONS (2)
  - GLOMERULAR FILTRATION RATE DECREASED [None]
  - RENAL IMPAIRMENT [None]
